FAERS Safety Report 8060687-1 (Version None)
Quarter: 2012Q1

REPORT INFORMATION
  Report Type: 
  Country: None (occurrence: None)
  Receive Date: 20120120
  Receipt Date: 20120116
  Transmission Date: 20120608
  Serious: No
  Sender: FDA-Public Use
  Company Number: US-BAYER-2012-006443

PATIENT
  Age: 62 Year
  Sex: Male
  Weight: 73 kg

DRUGS (3)
  1. ALEVE (CAPLET) [Suspect]
     Indication: TOOTHACHE
     Dosage: 1 U, UNK
     Route: 048
     Dates: start: 20120116
  2. GLUCATROL XL [Concomitant]
  3. METFORMIN HCL [Concomitant]

REACTIONS (1)
  - NO ADVERSE EVENT [None]
